FAERS Safety Report 19397536 (Version 1)
Quarter: 2021Q2

REPORT INFORMATION
  Report Type: Spontaneous
  Country: CN (occurrence: CN)
  Receive Date: 20210609
  Receipt Date: 20210609
  Transmission Date: 20210717
  Serious: Yes (Other)
  Sender: FDA-Public Use
  Company Number: CN-ASTRAZENECA-2021A508045

PATIENT
  Age: 59 Year
  Sex: Female
  Weight: 54 kg

DRUGS (1)
  1. TICAGRELOR. [Suspect]
     Active Substance: TICAGRELOR
     Indication: CORONARY ARTERIAL STENT INSERTION
     Route: 048
     Dates: start: 20210107, end: 20210112

REACTIONS (1)
  - Asphyxia [Recovering/Resolving]

NARRATIVE: CASE EVENT DATE: 20210110
